FAERS Safety Report 5231339-8 (Version None)
Quarter: 2007Q1

REPORT INFORMATION
  Report Type: 
  Country: None (occurrence: None)
  Receive Date: 20070206
  Receipt Date: 20070130
  Transmission Date: 20070707
  Serious: Yes (Death, Hospitalization, Other)
  Sender: FDA-Public Use
  Company Number: HQWYE982230JAN07

PATIENT
  Age: 61 Year
  Sex: Female

DRUGS (4)
  1. EFFEXOR XR [Suspect]
     Dosage: OVERDOSE AMOUNT UNKNOWN
     Route: 048
  2. SERTRALINE [Suspect]
     Dosage: OVERDOSE AMOUNT UNKNOWN
     Route: 048
  3. ATORVASTATIN CALCIUM [Suspect]
     Dosage: OVERDOSE AMOUNT UNKNOWN
     Route: 048
  4. NIFEDIPINE [Suspect]
     Dosage: OVERDOSE AMOUNT UNKNOWN
     Route: 048

REACTIONS (10)
  - BEZOAR [None]
  - BRADYCARDIA [None]
  - DRUG LEVEL INCREASED [None]
  - HYPOTENSION [None]
  - INTENTIONAL OVERDOSE [None]
  - LOSS OF CONSCIOUSNESS [None]
  - MULTI-ORGAN FAILURE [None]
  - RESPIRATORY RATE DECREASED [None]
  - SOMNOLENCE [None]
  - UNRESPONSIVE TO STIMULI [None]
